FAERS Safety Report 13469564 (Version 3)
Quarter: 2017Q2

REPORT INFORMATION
  Report Type: Spontaneous
  Country: IT (occurrence: IT)
  Receive Date: 20170421
  Receipt Date: 20170620
  Transmission Date: 20170830
  Serious: Yes (Hospitalization)
  Sender: FDA-Public Use
  Company Number: IT-ROCHE-1923660

PATIENT
  Age: 70 Year
  Sex: Female

DRUGS (8)
  1. SIVASTIN [Concomitant]
     Active Substance: SIMVASTATIN
  2. GAVISCON (ITALY) [Concomitant]
  3. ARAVA [Concomitant]
     Active Substance: LEFLUNOMIDE
  4. ATENOLOL. [Concomitant]
     Active Substance: ATENOLOL
  5. OMEPRAZOLE. [Concomitant]
     Active Substance: OMEPRAZOLE
  6. LODOTRA [Concomitant]
     Active Substance: PREDNISONE
  7. DIDROGYL [Concomitant]
     Active Substance: CALCIFEDIOL
  8. TOCILIZUMAB [Suspect]
     Active Substance: TOCILIZUMAB
     Indication: RHEUMATOID ARTHRITIS
     Route: 058
     Dates: start: 20160901, end: 20161227

REACTIONS (3)
  - Dyspnoea [Recovering/Resolving]
  - Chest pain [Recovering/Resolving]
  - Pulmonary hypertension [Recovering/Resolving]

NARRATIVE: CASE EVENT DATE: 20170112
